FAERS Safety Report 14270892 (Version 1)
Quarter: 2017Q4

REPORT INFORMATION
  Report Type: Spontaneous
  Country: AT (occurrence: AT)
  Receive Date: 20171211
  Receipt Date: 20171211
  Transmission Date: 20180321
  Serious: Yes (Other)
  Sender: FDA-Public Use
  Company Number: AT-ASTRAZENECA-2017SF25107

PATIENT
  Age: 77 Year
  Sex: Female

DRUGS (2)
  1. TAGRISSO [Suspect]
     Active Substance: OSIMERTINIB
     Indication: LUNG ADENOCARCINOMA
     Route: 048
     Dates: start: 201706
  2. IRESSA [Suspect]
     Active Substance: GEFITINIB
     Route: 048
     Dates: start: 201309

REACTIONS (6)
  - Depression [Unknown]
  - Metastases to bone [Unknown]
  - Metastases to central nervous system [Unknown]
  - Metastases to spine [Unknown]
  - Fatigue [Unknown]
  - Metastases to lung [Unknown]

NARRATIVE: CASE EVENT DATE: 201610
